FAERS Safety Report 6738888-1 (Version None)
Quarter: 2010Q2

REPORT INFORMATION
  Report Type: 
  Country: None (occurrence: None)
  Receive Date: 20100521
  Receipt Date: 20100505
  Transmission Date: 20101027
  Serious: Yes (Other)
  Sender: FDA-Public Use
  Company Number: FKO201000178

PATIENT
  Age: 79 Year
  Sex: Female

DRUGS (3)
  1. FLUOROURACIL (MANUFACTURER UNKNOWN) (FLUOROURACIL) (FLUOROURACIL) [Suspect]
     Indication: COLON CANCER METASTATIC
     Dosage: (2000 MG/M2, AS A 46-HOUR INFUSION EVERY 2 WEEKS), (1200 MG/M2)
     Dates: start: 20061201
  2. OXALIPLATIN (MANUFACTURER UNKNOWN) (OXALIPLATIN) (OXALIPLATIN) [Suspect]
     Dates: start: 20061201
  3. FOLINIC ACID (FOLINIC ACID) (FOLINIC ACID) [Concomitant]

REACTIONS (5)
  - ALTERED STATE OF CONSCIOUSNESS [None]
  - COLON CANCER METASTATIC [None]
  - HEPATIC FUNCTION ABNORMAL [None]
  - HYPERAMMONAEMIA [None]
  - MALIGNANT NEOPLASM PROGRESSION [None]
